FAERS Safety Report 6920829-5 (Version None)
Quarter: 2010Q3

REPORT INFORMATION
  Report Type: 
  Country: None (occurrence: None)
  Receive Date: 20100812
  Receipt Date: 20100805
  Transmission Date: 20110219
  Serious: Yes (Death, Life-Threatening, Hospitalization)
  Sender: FDA-Public Use
  Company Number: PHHY2010DE19536

PATIENT
  Sex: Female
  Weight: 81 kg

DRUGS (14)
  1. ALISKIREN ALI+ [Suspect]
     Indication: HYPERTENSION
     Dosage: 150 MG PER DAY
     Route: 048
     Dates: start: 20090331
  2. TORSEMIDE [Concomitant]
     Dosage: 20 MG/DAY
     Route: 048
     Dates: start: 20060221
  3. SIMVASTATIN [Concomitant]
     Dosage: 20 MG/DAY
     Route: 048
     Dates: start: 20050401
  4. LEVOTHYROXINE SODIUM [Concomitant]
     Indication: HYPOTHYROIDISM
     Dosage: 150 MG PER DAY
     Route: 048
     Dates: start: 20040112
  5. AMLODIPINE [Concomitant]
     Indication: HYPERTENSION
     Dosage: 10 MG PER DAY
     Route: 048
     Dates: start: 20081208
  6. METOPROLOL TARTRATE [Concomitant]
     Indication: HYPERTENSION
     Dosage: 200 MG PER DAY
     Route: 048
     Dates: start: 20050208
  7. BLOPRESS [Concomitant]
     Indication: HYPERTENSION
     Dosage: 32 MG PER DAY
     Route: 048
     Dates: start: 20060502
  8. DIGITOXIN [Concomitant]
     Indication: ATRIAL FIBRILLATION
     Dosage: 0.07 MG PER DAY
     Route: 048
     Dates: start: 20060309
  9. ASPIRIN [Concomitant]
     Indication: ATRIAL FIBRILLATION
     Dosage: 100 MG PER DAYUNK
     Route: 048
     Dates: start: 20060502
  10. MOXONIDINE [Concomitant]
     Indication: HYPERTENSION
     Dosage: 0.6 MG PER DAYUNK
     Route: 048
     Dates: start: 20090929
  11. NEPRESOL [Concomitant]
     Indication: HYPERTENSION
     Dosage: UNK
     Route: 048
     Dates: start: 20090929
  12. CALCIUM [Concomitant]
     Indication: RENAL FAILURE
     Dosage: 1500 MG PER DAY
     Route: 048
     Dates: start: 20090928
  13. BERLINSULIN H NORMAL [Concomitant]
     Indication: TYPE 2 DIABETES MELLITUS
     Dosage: UNK
     Route: 058
     Dates: start: 19900101
  14. BERLINSULIN H BASAL [Concomitant]
     Indication: TYPE 2 DIABETES MELLITUS
     Dosage: UNK
     Route: 058
     Dates: start: 19900101

REACTIONS (3)
  - GASTRITIS [None]
  - GENERAL PHYSICAL HEALTH DETERIORATION [None]
  - INFECTION [None]
